FAERS Safety Report 5712089-8 (Version None)
Quarter: 2008Q2

REPORT INFORMATION
  Report Type: 
  Country: None (occurrence: None)
  Receive Date: 20080417
  Receipt Date: 20080404
  Transmission Date: 20081010
  Serious: Yes (Other)
  Sender: FDA-Public Use
  Company Number: 2008-02267

PATIENT
  Age: 10 Year
  Sex: Male

DRUGS (1)
  1. TRELSTAR DEPOT [Suspect]
     Indication: PRECOCIOUS PUBERTY
     Dosage: 3 MG, Q MONTH, INTRAMUSCULAR
     Route: 030
     Dates: start: 20080304, end: 20080304

REACTIONS (6)
  - ABDOMINAL PAIN [None]
  - ANAPHYLACTIC REACTION [None]
  - HEADACHE [None]
  - OFF LABEL USE [None]
  - PYREXIA [None]
  - VOMITING [None]
